FAERS Safety Report 8052569-6 (Version None)
Quarter: 2012Q1

REPORT INFORMATION
  Report Type: 
  Country: None (occurrence: None)
  Receive Date: 20120118
  Receipt Date: 20120113
  Transmission Date: 20120608
  Serious: No
  Sender: FDA-Public Use
  Company Number: US-B.I. PHARMACEUTICALS,INC./RIDGEFIELD-2011-BP-03397BP

PATIENT
  Sex: Male

DRUGS (4)
  1. PRADAXA [Suspect]
     Indication: ATRIAL FIBRILLATION
  2. PRADAXA [Suspect]
     Dosage: 300 MG
     Route: 048
     Dates: start: 20111207, end: 20120101
  3. BISOPROLOL FUMARATE [Concomitant]
     Indication: CARDIAC DISORDER
  4. MICARDIS [Concomitant]
     Indication: CARDIAC DISORDER

REACTIONS (3)
  - HAEMORRHOIDAL HAEMORRHAGE [None]
  - EPISTAXIS [None]
  - ADVERSE REACTION [None]
